FAERS Safety Report 24416476 (Version 1)
Quarter: 2024Q4

REPORT INFORMATION
  Report Type: Report from Study
  Country: GB (occurrence: GB)
  Receive Date: 20241009
  Receipt Date: 20241009
  Transmission Date: 20250114
  Serious: Yes (Other)
  Sender: CHIESI
  Company Number: GB-CHIESI-2024CHF06465

PATIENT
  Age: 60 Year
  Sex: Male

DRUGS (1)
  1. ELFABRIO [Suspect]
     Active Substance: PEGUNIGALSIDASE ALFA-IWXJ
     Indication: Fabry^s disease
     Dosage: UNK
     Dates: start: 2019

REACTIONS (3)
  - Cerebrovascular accident [Recovered/Resolved]
  - Heart rate decreased [Recovered/Resolved]
  - Fatigue [Recovered/Resolved]

NARRATIVE: CASE EVENT DATE: 20221101
